FAERS Safety Report 24530925 (Version 4)
Quarter: 2024Q4

REPORT INFORMATION
  Report Type: Spontaneous
  Country: US (occurrence: US)
  Receive Date: 20241021
  Receipt Date: 20241227
  Transmission Date: 20250115
  Serious: Yes (Hospitalization, Other)
  Sender: CSL BEHRING
  Company Number: US-BEH-2024182397

PATIENT
  Age: 76 Year
  Sex: Female

DRUGS (24)
  1. HIZENTRA [Suspect]
     Active Substance: HUMAN IMMUNOGLOBULIN G
     Indication: Immunodeficiency common variable
     Dosage: 12 G, QW
     Route: 058
     Dates: start: 20210712
  2. HIZENTRA [Suspect]
     Active Substance: HUMAN IMMUNOGLOBULIN G
     Dosage: 12 G, QW (10G VIAL)
     Route: 058
     Dates: start: 20240924
  3. HIZENTRA [Suspect]
     Active Substance: HUMAN IMMUNOGLOBULIN G
     Dosage: 12 G, QW (2G VIAL)
     Route: 058
     Dates: start: 20240924
  4. COVID-19 vaccine [Concomitant]
     Dosage: UNK
     Route: 065
     Dates: start: 20240927
  5. DICLOFENAC [Concomitant]
     Active Substance: DICLOFENAC
     Route: 061
  6. DULOXETINE [Concomitant]
     Active Substance: DULOXETINE
     Dosage: 60 MG, QD
  7. LORATADINE [Concomitant]
     Active Substance: LORATADINE
     Dosage: 10 MG
  8. BLACK COHOSH [Concomitant]
     Active Substance: BLACK COHOSH
  9. VITAMIN B12 [Concomitant]
     Active Substance: CYANOCOBALAMIN
     Dosage: 100 MCG
  10. VITAMIN D3 [Concomitant]
     Active Substance: CHOLECALCIFEROL
     Dosage: 1250 MCG
  11. VITAMIN E [Concomitant]
     Active Substance: .ALPHA.-TOCOPHEROL
     Dosage: 400 MG
  12. SYNTHROID [Concomitant]
     Active Substance: LEVOTHYROXINE SODIUM
     Dosage: 75 MCG
  13. LOSARTAN [Concomitant]
     Active Substance: LOSARTAN
     Dosage: 50 MG
  14. SYMBICORT [Concomitant]
     Active Substance: BUDESONIDE\FORMOTEROL FUMARATE DIHYDRATE
     Dosage: 160/4.5 2X2
  15. ALBUTEROL SULFATE [Concomitant]
     Active Substance: ALBUTEROL SULFATE
     Dosage: 90 MCG PRN
  16. PROPRANOLOL [Concomitant]
     Active Substance: PROPRANOLOL HYDROCHLORIDE
     Dosage: 20 MG, BID
  17. LIDOCAINE\PRILOCAINE HYDROCHLORIDE [Concomitant]
     Active Substance: LIDOCAINE\PRILOCAINE HYDROCHLORIDE
     Dosage: 2.5%-2.5%
     Route: 061
  18. PEPCID [Concomitant]
     Active Substance: FAMOTIDINE
     Route: 048
  19. BENZONATATE [Concomitant]
     Active Substance: BENZONATATE
     Dosage: 100 MG
  20. COLACE [Concomitant]
     Active Substance: DOCUSATE SODIUM
     Route: 048
  21. MELATONIN [Concomitant]
     Active Substance: MELATONIN
     Route: 048
  22. TYLENOL [Concomitant]
     Active Substance: ACETAMINOPHEN
     Route: 048
  23. BIOTIN [Concomitant]
     Active Substance: BIOTIN
     Route: 048
  24. OXYCODONE [Concomitant]
     Active Substance: OXYCODONE
     Dosage: 5 MG

REACTIONS (14)
  - Pulmonary embolism [Unknown]
  - Deep vein thrombosis [Unknown]
  - Back pain [Unknown]
  - Chest pain [Unknown]
  - Thrombophlebitis [Unknown]
  - Arthropathy [Unknown]
  - Immobile [Unknown]
  - COVID-19 [Unknown]
  - Therapy interrupted [Unknown]
  - Mobility decreased [Unknown]
  - Exercise lack of [Unknown]
  - Obesity [Unknown]
  - Cataract operation [Unknown]
  - Cataract operation [Unknown]

NARRATIVE: CASE EVENT DATE: 20240101
